FAERS Safety Report 19864701 (Version 3)
Quarter: 2022Q4

REPORT INFORMATION
  Report Type: Report from Study
  Country: US (occurrence: US)
  Receive Date: 20210921
  Receipt Date: 20221230
  Transmission Date: 20230113
  Serious: No
  Sender: FDA-Public Use
  Company Number: US-ACORDA-ACO_170195_2021

PATIENT
  Age: 86 Year
  Sex: Male
  Weight: 72.562 kg

DRUGS (12)
  1. INBRIJA [Suspect]
     Active Substance: LEVODOPA
     Indication: Parkinson^s disease
     Dosage: 84 MILLIGRAM, PRN (NOT TO EXCEED 5 DOSES PER DAY)
     Dates: start: 20210828, end: 202111
  2. INBRIJA [Suspect]
     Active Substance: LEVODOPA
     Indication: On and off phenomenon
  3. CARBIDOPA\LEVODOPA [Concomitant]
     Active Substance: CARBIDOPA\LEVODOPA
     Indication: Product used for unknown indication
     Dosage: UNK UNK, TID
     Route: 048
  4. CARBIDOPA\LEVODOPA [Concomitant]
     Active Substance: CARBIDOPA\LEVODOPA
     Dosage: EXTENDED RELEASE CARBIDOPA/LEVODOPA AT BEDTIME
     Route: 065
  5. ACETAMINOPHEN [Concomitant]
     Active Substance: ACETAMINOPHEN
     Indication: Product used for unknown indication
     Dosage: AS NEEDED
     Route: 065
     Dates: start: 20200303
  6. SINEMET [Concomitant]
     Active Substance: CARBIDOPA\LEVODOPA
     Indication: Product used for unknown indication
     Dosage: 50-200 MG, 1 TABLET BY MOUTH AT BEDTIME
     Route: 048
     Dates: start: 20210119, end: 20210702
  7. SINEMET [Concomitant]
     Active Substance: CARBIDOPA\LEVODOPA
     Dosage: 25-100 MG, 1 TABLET BY MOUTH AS DIRECTED, TAKE 2 TABS AT 7AM AND 11AM, TAKE 3 TABS AT 3-4PM
     Route: 048
     Dates: start: 20210621, end: 20210919
  8. SINEMET [Concomitant]
     Active Substance: CARBIDOPA\LEVODOPA
     Dosage: 25-100 MG, TAKE 2 TABLETS AT 7AM AND 11AM THEN TAKE 3 TABLETS AT 3-4PM
     Route: 048
     Dates: start: 20210525
  9. FOLIC ACID [Concomitant]
     Active Substance: FOLIC ACID
     Indication: Product used for unknown indication
     Dosage: ONE DAILY
     Route: 048
     Dates: start: 20200303
  10. IBUPROFEN [Concomitant]
     Active Substance: IBUPROFEN
     Indication: Product used for unknown indication
     Dosage: AS NEEDED
     Route: 048
     Dates: start: 20200303
  11. MORNIFLUMATE [Concomitant]
     Active Substance: MORNIFLUMATE
     Indication: Product used for unknown indication
     Dosage: 0.4 MG, 1 AT BEDTIME
     Route: 048
  12. VITAMIN D NOS [Concomitant]
     Active Substance: VITAMIN D NOS
     Indication: Product used for unknown indication
     Dosage: 2000 UNIT DAILY
     Route: 048

REACTIONS (12)
  - Device difficult to use [Unknown]
  - Lung disorder [Not Recovered/Not Resolved]
  - Choking [Not Recovered/Not Resolved]
  - Product packaging difficult to open [Unknown]
  - Drug effect less than expected [Unknown]
  - Prescribed underdose [Unknown]
  - Product communication issue [Unknown]
  - Wrong technique in device usage process [Unknown]
  - Impatience [Unknown]
  - Somnolence [Not Recovered/Not Resolved]
  - Cough [Not Recovered/Not Resolved]
  - Drug ineffective [Unknown]

NARRATIVE: CASE EVENT DATE: 20210831
